FAERS Safety Report 11077673 (Version 1)
Quarter: 2015Q2

REPORT INFORMATION
  Report Type: Spontaneous
  Country: GB (occurrence: GB)
  Receive Date: 20150430
  Receipt Date: 20150430
  Transmission Date: 20150821
  Serious: Yes (Other)
  Sender: FDA-Public Use
  Company Number: GB-ABBVIE-15K-167-1381535-00

PATIENT
  Sex: Male

DRUGS (1)
  1. HUMIRA [Suspect]
     Active Substance: ADALIMUMAB
     Indication: ANKYLOSING SPONDYLITIS
     Route: 065
     Dates: start: 2012

REACTIONS (5)
  - Lupus-like syndrome [Unknown]
  - Antinuclear antibody positive [Unknown]
  - Rash [Unknown]
  - Dermatomyositis [Unknown]
  - Arthritis [Unknown]
